FAERS Safety Report 8392004-1 (Version None)
Quarter: 2012Q1

REPORT INFORMATION
  Report Type: 
  Country: None (occurrence: None)
  Receive Date: 20120323
  Receipt Date: 20110527
  Transmission Date: 20120608
  Serious: Yes (Hospitalization)
  Sender: FDA-Public Use
  Company Number: 163-21880-11030042

PATIENT
  Age: 61 Year
  Sex: Female

DRUGS (8)
  1. ZOLPIDEM TARTRATE [Concomitant]
  2. PANTOPRAZOLE (PANTOPRAZOLE) (TABLETS) [Concomitant]
  3. DEXAMETHASONE [Concomitant]
  4. LIDOCAINE (LIDOCAINE) (UNKNOWN) [Concomitant]
  5. REVLIMID [Suspect]
     Indication: MULTIPLE MYELOMA
     Dosage: 25 MG, DAILY FOR 21 DAYS, OFF 7 DAYS, PO, HELDMULTIPLE MYELOMA [V.14.1]
     Route: 048
     Dates: start: 20101229
  6. REVLIMID [Suspect]
  7. SERTRALINE (SERTRALINE) (TABLETS) [Concomitant]
  8. Q-DRYL (DI PHENHYDRAMINE) (UNKNOWN) [Concomitant]

REACTIONS (2)
  - DYSPNOEA [None]
  - ABDOMINAL PAIN UPPER [None]
